FAERS Safety Report 7502204-8 (Version None)
Quarter: 2011Q1

REPORT INFORMATION
  Report Type: 
  Country: None (occurrence: None)
  Receive Date: 20110318
  Receipt Date: 20101004
  Transmission Date: 20110831
  Serious: Yes (Hospitalization)
  Sender: FDA-Public Use
  Company Number: 2010SP053064

PATIENT
  Age: 54 Year
  Sex: Male

DRUGS (1)
  1. PEG-INTRON [Suspect]
     Indication: HEPATITIS C
     Dosage: QW;SC
     Route: 058
     Dates: start: 20100901

REACTIONS (3)
  - DYSPNOEA [None]
  - FATIGUE [None]
  - DIARRHOEA [None]
